FAERS Safety Report 5274744-6 (Version None)
Quarter: 2007Q1

REPORT INFORMATION
  Report Type: 
  Country: None (occurrence: None)
  Receive Date: 20070320
  Receipt Date: 20070309
  Transmission Date: 20070707
  Serious: Yes (Death, Hospitalization, Other)
  Sender: FDA-Public Use
  Company Number: 163-C5013-07010948

PATIENT
  Age: 76 Year
  Sex: Male
  Weight: 57.6 kg

DRUGS (20)
  1. CC-5013 (LENALIDOMIDE) (CAPSULES) [Suspect]
     Indication: MULTIPLE MYELOMA
     Dosage: 10 MG, DAILY X 21 DAYS, ORAL
     Route: 048
     Dates: start: 20030922, end: 20061215
  2. PREDNISONE [Suspect]
     Indication: DRUG USE FOR UNKNOWN INDICATION
     Dosage: 50 MG, EVERY OTHER DAY, ORAL
     Route: 048
  3. CHOLESTYRAMINE (COLESTYRAMINE) (POWDER) [Concomitant]
  4. FOLIC ACID [Concomitant]
  5. COMBIVENT/ACTUATION AEROSOL INHALER (COMBIVENT) [Concomitant]
  6. SINEMET (SINEMET) (TABLETS) [Concomitant]
  7. MEGACE (MEGESTEROL ACETATE) [Concomitant]
  8. PROPRANOLOL [Concomitant]
  9. ALTACE [Concomitant]
  10. OXYCONTIN [Concomitant]
  11. GAMMAGARD S/D [Concomitant]
  12. AREDIA [Concomitant]
  13. LACTAIN EXTRA STRENGTH (TILACTASE) (TABLETS) [Concomitant]
  14. VITAMIN B12 [Concomitant]
  15. LANOXIN [Concomitant]
  16. PROCRIT (ERYTHROPOIETIN) (INJECTIN) [Concomitant]
  17. ASA LOW DOSE (ACETYLSALICYLIC ACID) [Concomitant]
  18. ZANTAC [Concomitant]
  19. LEVOPHEN (NOREPINEPHRINE BITARTRATE) [Concomitant]
  20. VASOPRESSIN (VASOPRESSIN) [Concomitant]

REACTIONS (17)
  - CAROTID ARTERIOSCLEROSIS [None]
  - CEREBROVASCULAR ACCIDENT [None]
  - HYPOMAGNESAEMIA [None]
  - HYPONATRAEMIA [None]
  - HYPOTENSION [None]
  - LETHARGY [None]
  - LEUKOCYTOSIS [None]
  - METABOLIC ACIDOSIS [None]
  - OPHTHALMOPLEGIA [None]
  - PULMONARY FIBROSIS [None]
  - RENAL INJURY [None]
  - RESPIRATORY FAILURE [None]
  - RESPIRATORY SYNCYTIAL VIRUS INFECTION [None]
  - SEPSIS [None]
  - STAPHYLOCOCCAL BACTERAEMIA [None]
  - STAPHYLOCOCCAL INFECTION [None]
  - THROMBOCYTOPENIA [None]
